FAERS Safety Report 10678623 (Version 2)
Quarter: 2015Q1

REPORT INFORMATION
  Report Type: Spontaneous
  Country: IN (occurrence: None)
  Receive Date: 20141223
  Receipt Date: 20150212
  Transmission Date: 20150720
  Serious: Yes (Other)
  Sender: FDA-Public Use
  Company Number: 2014HINLIT1058

PATIENT
  Age: 46 Year
  Sex: Female

DRUGS (5)
  1. CEFTRIAXONE (CEFTRIAXONE) UNKNOWN [Suspect]
     Active Substance: CEFTRIAXONE
     Indication: PRODUCT USED FOR UNKNOWN INDICATION
  2. LEVETIRACETAM. [Suspect]
     Active Substance: LEVETIRACETAM
     Indication: SEIZURE
     Dosage: 20 MG/KG FOLLOWED BY 500 MG 8TH HOURLY
  3. LEVETIRACETAM. [Suspect]
     Active Substance: LEVETIRACETAM
     Dosage: 20 MG/KG FOLLOWED BY 500 MG 8TH HOURLY
  4. ACYCLOVIR (ACYCLOVIR) [Suspect]
     Active Substance: ACYCLOVIR
     Indication: PRODUCT USED FOR UNKNOWN INDICATION
  5. CLOBAZAM [Concomitant]
     Active Substance: CLOBAZAM

REACTIONS (3)
  - Encephalopathy [None]
  - Toxic encephalopathy [None]
  - Status epilepticus [None]
